FAERS Safety Report 13698552 (Version 1)
Quarter: 2017Q2

REPORT INFORMATION
  Report Type: Spontaneous
  Country: PT (occurrence: PT)
  Receive Date: 20170628
  Receipt Date: 20170628
  Transmission Date: 20170830
  Serious: Yes (Other)
  Sender: FDA-Public Use
  Company Number: PT-GILEAD-2017-0280211

PATIENT
  Age: 36 Year
  Sex: Male
  Weight: 90 kg

DRUGS (2)
  1. HARVONI [Suspect]
     Active Substance: LEDIPASVIR\SOFOSBUVIR
     Indication: HEPATITIS C
     Dosage: 1 DF, QD
     Route: 048
     Dates: start: 20170413
  2. OLCADIL [Concomitant]
     Active Substance: CLOXAZOLAM
     Route: 048

REACTIONS (4)
  - Headache [Recovering/Resolving]
  - Mood altered [Recovering/Resolving]
  - Myalgia [Recovering/Resolving]
  - Insomnia [Recovering/Resolving]

NARRATIVE: CASE EVENT DATE: 201704
